FAERS Safety Report 5246248-8 (Version None)
Quarter: 2007Q1

REPORT INFORMATION
  Report Type: 
  Country: None (occurrence: None)
  Receive Date: 20070221
  Receipt Date: 20070206
  Transmission Date: 20070707
  Serious: Yes (Other)
  Sender: FDA-Public Use
  Company Number: 2007HN003540

PATIENT
  Age: 56 Year
  Sex: Female

DRUGS (4)
  1. ONICIT(PALONOSETRON HYDROCHLORIDE) INJECTION, 0.25MG/5ML [Suspect]
     Indication: PROPHYLAXIS OF NAUSEA AND VOMITING
     Dosage: 0.25 MG, QWK, INTRAVENOUS
     Route: 042
     Dates: start: 20061201, end: 20070101
  2. COZAAR [Concomitant]
  3. CADUET (AMLODIPINE BESILATE, ATORVASTATIN CALCIUM) [Concomitant]
  4. MINODIAB (GLIPIZIDE) [Concomitant]

REACTIONS (1)
  - HYPERTENSIVE CRISIS [None]
